FAERS Safety Report 15923386 (Version 1)
Quarter: 2019Q1

REPORT INFORMATION
  Report Type: Spontaneous
  Country: US (occurrence: US)
  Receive Date: 20190206
  Receipt Date: 20190206
  Transmission Date: 20190417
  Serious: No
  Sender: FDA-Public Use
  Company Number: US-GLAXOSMITHKLINE-US2019017907

PATIENT
  Age: 23 Year
  Sex: Male

DRUGS (1)
  1. ABREVA [Suspect]
     Active Substance: DOCOSANOL
     Indication: ORAL HERPES
     Dosage: UNK (THREE TO FOUR TIMES A DAY)
     Dates: start: 20190127, end: 20190129

REACTIONS (1)
  - Inappropriate schedule of product administration [Unknown]
